FAERS Safety Report 10522708 (Version 1)
Quarter: 2014Q4

REPORT INFORMATION
  Report Type: Spontaneous
  Country: CA (occurrence: CA)
  Receive Date: 20141016
  Receipt Date: 20141016
  Transmission Date: 20150528
  Serious: No
  Sender: FDA-Public Use
  Company Number: CA-ELI_LILLY_AND_COMPANY-CA201410003821

PATIENT
  Age: 49 Year
  Sex: Male

DRUGS (1)
  1. CIALIS [Suspect]
     Active Substance: TADALAFIL
     Indication: PELVIC PAIN
     Dosage: 5 MG, QD

REACTIONS (2)
  - Visual impairment [Recovered/Resolved]
  - Off label use [Recovered/Resolved]
